FAERS Safety Report 19176398 (Version 4)
Quarter: 2021Q2

REPORT INFORMATION
  Report Type: Report from Study
  Country: CO (occurrence: CO)
  Receive Date: 20210424
  Receipt Date: 20210616
  Transmission Date: 20210717
  Serious: Yes (Other)
  Sender: FDA-Public Use
  Company Number: CO-TAKEDA-CO202019703

PATIENT
  Age: 25 Year
  Sex: Male
  Weight: 88 kg

DRUGS (4)
  1. ICATIBANT [Suspect]
     Active Substance: ICATIBANT ACETATE
     Indication: HEREDITARY ANGIOEDEMA
     Dosage: 30 MG/3ML
     Route: 058
     Dates: start: 20190902
  2. ICATIBANT [Suspect]
     Active Substance: ICATIBANT ACETATE
     Indication: HEREDITARY ANGIOEDEMA
     Dosage: 30 MG/3ML
     Route: 058
     Dates: start: 20190902
  3. ICATIBANT [Suspect]
     Active Substance: ICATIBANT ACETATE
     Dosage: 1 DOSAGE FORM
     Route: 058
     Dates: start: 20190902
  4. ICATIBANT [Suspect]
     Active Substance: ICATIBANT ACETATE
     Dosage: 1 DOSAGE FORM
     Route: 058
     Dates: start: 20190902

REACTIONS (13)
  - Discouragement [Not Recovered/Not Resolved]
  - Decreased appetite [Not Recovered/Not Resolved]
  - Discouragement [Not Recovered/Not Resolved]
  - Weight increased [Unknown]
  - COVID-19 [Recovered/Resolved with Sequelae]
  - Spinal pain [Recovering/Resolving]
  - Pain [Not Recovered/Not Resolved]
  - Asthenia [Not Recovered/Not Resolved]
  - Ligament sprain [Recovering/Resolving]
  - Fatigue [Not Recovered/Not Resolved]
  - Burning sensation [Unknown]
  - Road traffic accident [Recovering/Resolving]
  - Weight decreased [Unknown]

NARRATIVE: CASE EVENT DATE: 20200618
